FAERS Safety Report 18376548 (Version 1)
Quarter: 2020Q4

REPORT INFORMATION
  Report Type: Report from Study
  Country: US (occurrence: US)
  Receive Date: 20201013
  Receipt Date: 20201013
  Transmission Date: 20210114
  Serious: Yes (Other)
  Sender: FDA-Public Use
  Company Number: US-PFIZER INC-2020390845

PATIENT

DRUGS (3)
  1. MESNA. [Concomitant]
     Active Substance: MESNA
     Indication: NON-SMALL CELL LUNG CANCER
     Dosage: UNK, CYCLIC
  2. IFOSFAMIDE. [Concomitant]
     Active Substance: IFOSFAMIDE
     Indication: NON-SMALL CELL LUNG CANCER
     Dosage: 2000 MG/M2, DAILY
  3. DILANTIN [Suspect]
     Active Substance: PHENYTOIN
     Indication: METASTASES TO CENTRAL NERVOUS SYSTEM
     Dosage: UNK(LOW LEVEL)

REACTIONS (1)
  - Seizure [Unknown]
